FAERS Safety Report 10272442 (Version 2)
Quarter: 2014Q3

REPORT INFORMATION
  Report Type: Report from Study
  Country: CO (occurrence: None)
  Receive Date: 20140627
  Receipt Date: 20140725
  Transmission Date: 20150326
  Serious: Yes (Other)
  Sender: FDA-Public Use
  Company Number: 2014-19863

PATIENT
  Age: 65 Year
  Sex: Female

DRUGS (2)
  1. VITALUX PLUS (ASCORBIC ACID, BETACAROTENE, COPPER, RIBOFLAVIN, SELENIUM, TOCOPHERYL ACETATE, ZINC GLUCONATE) [Concomitant]
  2. EYLEA [Suspect]
     Active Substance: AFLIBERCEPT
     Indication: PRODUCT USED FOR UNKNOWN INDICATION
     Route: 031
     Dates: start: 20140603, end: 20140603

REACTIONS (4)
  - Vision blurred [None]
  - Blindness transient [None]
  - Colour blindness [None]
  - Drug dose omission [None]

NARRATIVE: CASE EVENT DATE: 20140606
